FAERS Safety Report 9543251 (Version 1)
Quarter: 2013Q2

REPORT INFORMATION
  Report Type: Spontaneous
  Country: US (occurrence: None)
  Receive Date: 20130524
  Receipt Date: 20130524
  Transmission Date: 20140414
  Serious: No
  Sender: FDA-Public Use
  Company Number: PHEH2013US000460

PATIENT
  Age: 40 Year
  Sex: Female

DRUGS (1)
  1. GILENYA [Suspect]
     Indication: MULTIPLE SCLEROSIS
     Dosage: 0.5 MG, DAILY, ORAL 18DEC2012 TO ONGOING
     Route: 048
     Dates: start: 20121218

REACTIONS (5)
  - Chills [None]
  - Cold sweat [None]
  - Vomiting [None]
  - Nasopharyngitis [None]
  - Headache [None]
